FAERS Safety Report 23473328 (Version 1)
Quarter: 2024Q1

REPORT INFORMATION
  Report Type: Spontaneous
  Country: GB (occurrence: GB)
  Receive Date: 20240203
  Receipt Date: 20240203
  Transmission Date: 20240410
  Serious: Yes (Other)
  Sender: FDA-Public Use
  Company Number: None

PATIENT

DRUGS (2)
  1. DEXAMETHASONE [Suspect]
     Active Substance: DEXAMETHASONE
     Indication: Product used for unknown indication
     Dosage: DOSE DESC: EVERY 2 HOURS, FORM: UNKNOWN; ;
     Route: 065
  2. OZURDEX [Suspect]
     Active Substance: DEXAMETHASONE
     Indication: Uveitis
     Dosage: TIME INTERVAL: AS NECESSARY: AS NECESSARY
     Route: 065
     Dates: start: 20221103, end: 20221103

REACTIONS (3)
  - Endophthalmitis [Unknown]
  - Fibrin deposition on lens postoperative [Not Recovered/Not Resolved]
  - Eye inflammation [Not Recovered/Not Resolved]

NARRATIVE: CASE EVENT DATE: 20221101
